FAERS Safety Report 8443391-7 (Version None)
Quarter: 2012Q2

REPORT INFORMATION
  Report Type: 
  Country: None (occurrence: None)
  Receive Date: 20120618
  Receipt Date: 20120611
  Transmission Date: 20120825
  Serious: Yes (Hospitalization, Other)
  Sender: FDA-Public Use
  Company Number: US-BIOGENIDEC-2012BI020735

PATIENT
  Sex: Female

DRUGS (1)
  1. AVONEX [Suspect]
     Indication: MULTIPLE SCLEROSIS
     Route: 030
     Dates: start: 20010101, end: 20120501

REACTIONS (7)
  - COORDINATION ABNORMAL [None]
  - GAIT DISTURBANCE [None]
  - FALL [None]
  - ABASIA [None]
  - RETINAL DETACHMENT [None]
  - SPEECH DISORDER [None]
  - VISUAL IMPAIRMENT [None]
